FAERS Safety Report 8874621 (Version 2)
Quarter: 2013Q2

REPORT INFORMATION
  Report Type: Spontaneous
  Country: US (occurrence: US)
  Receive Date: 20121031
  Receipt Date: 20130404
  Transmission Date: 20140414
  Serious: No
  Sender: FDA-Public Use
  Company Number: US-VERTEX PHARMACEUTICAL INC.-2012-023789

PATIENT
  Age: 53 Year
  Sex: Female
  Weight: 54 kg

DRUGS (11)
  1. INCIVEK [Suspect]
     Indication: HEPATITIS C
     Dosage: 750 MG, TID
     Route: 048
     Dates: start: 20121028
  2. RIBAVIRIN [Suspect]
     Indication: HEPATITIS C
     Dosage: 400MG AM, 600MG PM
     Dates: start: 20121028
  3. PEGASYS [Suspect]
     Indication: HEPATITIS C
     Dosage: 180 ?G, QW
     Route: 058
     Dates: start: 20121028
  4. ZOMIG [Concomitant]
     Dosage: 5 MG, UNK
  5. DILAUDID [Concomitant]
     Dosage: 2 MG, UNK
  6. ASPIRIN [Concomitant]
     Dosage: 81 MG, UNK
  7. SPIRIVA [Concomitant]
  8. CALCIUM 500 [Concomitant]
     Dosage: 500 UNK, UNK
  9. MULTIVITAMIN [Concomitant]
  10. LORTAB [Concomitant]
  11. OMEGA 3 6 9 [Concomitant]

REACTIONS (6)
  - White blood cell count decreased [Unknown]
  - Chills [Not Recovered/Not Resolved]
  - Pain [Not Recovered/Not Resolved]
  - Alopecia [Unknown]
  - Rash [Unknown]
  - Red blood cell count decreased [Unknown]
